FAERS Safety Report 10401474 (Version 1)
Quarter: 2014Q3

REPORT INFORMATION
  Report Type: Spontaneous
  Country: JP (occurrence: None)
  Receive Date: 20140820
  Receipt Date: 20140820
  Transmission Date: 20150326
  Serious: Yes (Death, Life-Threatening)
  Sender: FDA-Public Use
  Company Number: FK201403332

PATIENT
  Age: 67 Year
  Sex: Male

DRUGS (2)
  1. HEPARIN [Suspect]
     Active Substance: HEPARIN SODIUM
     Indication: ANTICOAGULANT THERAPY
     Dosage: CONTINUOUS INFUSION
     Route: 042
  2. THROMBOMODULIN-A (THROMBOMODULIN ALFA) [Concomitant]

REACTIONS (5)
  - Heparin-induced thrombocytopenia [None]
  - Multi-organ failure [None]
  - Thrombosis in device [None]
  - Activated partial thromboplastin time prolonged [None]
  - Disseminated intravascular coagulation [None]
